FAERS Safety Report 22842770 (Version 10)
Quarter: 2024Q1

REPORT INFORMATION
  Report Type: Report from Study
  Country: CA (occurrence: CA)
  Receive Date: 20230821
  Receipt Date: 20240103
  Transmission Date: 20240410
  Serious: Yes (Hospitalization, Other)
  Sender: FDA-Public Use
  Company Number: CA-KOREA IPSEN Pharma-2023-18110

PATIENT
  Age: 72 Year
  Sex: Male

DRUGS (12)
  1. LANREOTIDE ACETATE [Suspect]
     Active Substance: LANREOTIDE ACETATE
     Indication: Gastroenteropancreatic neuroendocrine tumour disease
     Route: 058
     Dates: start: 20230622
  2. LANREOTIDE ACETATE [Suspect]
     Active Substance: LANREOTIDE ACETATE
     Route: 058
  3. BISOPROLOL [Concomitant]
     Active Substance: BISOPROLOL\BISOPROLOL FUMARATE
  4. SILODOSIN [Concomitant]
     Active Substance: SILODOSIN
  5. DUTASTERIDE [Concomitant]
     Active Substance: DUTASTERIDE
  6. ROSUVASTATIN [Concomitant]
     Active Substance: ROSUVASTATIN
  7. PERINDOPRIL [Concomitant]
     Active Substance: PERINDOPRIL
  8. ATIVAN [Concomitant]
     Active Substance: LORAZEPAM
  9. PANTOPRAZOLE [Concomitant]
     Active Substance: PANTOPRAZOLE
  10. TYLENOL [Concomitant]
     Active Substance: ACETAMINOPHEN
     Dosage: PRN
  11. RELAXA [Concomitant]
  12. CHOLECALCIFEROL [Concomitant]
     Active Substance: CHOLECALCIFEROL
     Dosage: 10 000UI PO
     Route: 048

REACTIONS (11)
  - Nephrolithiasis [Recovered/Resolved]
  - Pain [Recovered/Resolved]
  - Diarrhoea [Recovered/Resolved]
  - Asthenia [Recovered/Resolved]
  - Injection site pain [Recovered/Resolved]
  - Blood pressure increased [Recovered/Resolved]
  - Herpes zoster [Recovered/Resolved]
  - Headache [Recovering/Resolving]
  - Neck pain [Not Recovered/Not Resolved]
  - Urticaria [Recovered/Resolved]
  - Off label use [Unknown]

NARRATIVE: CASE EVENT DATE: 20230710
